FAERS Safety Report 17278413 (Version 1)
Quarter: 2020Q1

REPORT INFORMATION
  Report Type: Spontaneous
  Country: FR (occurrence: FR)
  Receive Date: 20200116
  Receipt Date: 20200116
  Transmission Date: 20200409
  Serious: Yes (Hospitalization)
  Sender: FDA-Public Use
  Company Number: FR-MYLANLABS-2020M1004533

PATIENT
  Sex: Male

DRUGS (5)
  1. ACETYLSALICYLIC ACID [Suspect]
     Active Substance: ASPIRIN
     Indication: THROMBOSIS PROPHYLAXIS
     Dosage: NON CONNUE
     Route: 048
  2. PRAVASTATIN. [Suspect]
     Active Substance: PRAVASTATIN
     Indication: HYPERCHOLESTEROLAEMIA
     Dosage: NON CONNUE
     Route: 048
  3. PANTOPRAZOLE [Suspect]
     Active Substance: PANTOPRAZOLE
     Indication: PROPHYLAXIS AGAINST GASTROINTESTINAL ULCER
     Dosage: NON CONNUE
     Route: 048
  4. ACEBUTOLOL [Suspect]
     Active Substance: ACEBUTOLOL
     Indication: CORONARY ARTERY DISEASE
     Dosage: NON CONNUE
     Route: 048
     Dates: end: 2016
  5. ATENOLOL. [Suspect]
     Active Substance: ATENOLOL
     Indication: ANGIOCARDIOGRAM
     Dosage: NON CONNUE
     Route: 048
     Dates: start: 2016

REACTIONS (3)
  - Dyspnoea exertional [Not Recovered/Not Resolved]
  - Pulmonary fibrosis [Not Recovered/Not Resolved]
  - Interstitial lung disease [Not Recovered/Not Resolved]

NARRATIVE: CASE EVENT DATE: 2009
